FAERS Safety Report 10445386 (Version 1)
Quarter: 2014Q3

REPORT INFORMATION
  Report Type: Spontaneous
  Country: US (occurrence: US)
  Receive Date: 20140908
  Receipt Date: 20140908
  Transmission Date: 20150326
  Serious: Yes (Other)
  Sender: FDA-Public Use
  Company Number: US-BRISTOL-MYERS SQUIBB COMPANY-20718458

PATIENT
  Age: 47 Year
  Sex: Female
  Weight: 95.24 kg

DRUGS (7)
  1. LISINOPRIL. [Concomitant]
     Active Substance: LISINOPRIL
  2. LAMOTRIGINE. [Concomitant]
     Active Substance: LAMOTRIGINE
  3. ABILIFY [Suspect]
     Active Substance: ARIPIPRAZOLE
     Dosage: DOSE INCREASED TO 5MG AND THEN TOOK 2 MG
     Dates: start: 201306
  4. ADDERALL [Concomitant]
     Active Substance: AMPHETAMINE ASPARTATE\AMPHETAMINE SULFATE\DEXTROAMPHETAMINE SACCHARATE\DEXTROAMPHETAMINE SULFATE
  5. LANTUS [Suspect]
     Active Substance: INSULIN GLARGINE
     Dosage: 50 UNITS NOS
  6. NOVOLOG [Suspect]
     Active Substance: INSULIN ASPART
  7. BUPROPION [Concomitant]
     Active Substance: BUPROPION

REACTIONS (2)
  - Weight decreased [Unknown]
  - Blood glucose decreased [Unknown]
